FAERS Safety Report 9478822 (Version 3)
Quarter: 2013Q4

REPORT INFORMATION
  Report Type: Spontaneous
  Country: US (occurrence: US)
  Receive Date: 20130827
  Receipt Date: 20131126
  Transmission Date: 20140711
  Serious: Yes (Hospitalization)
  Sender: FDA-Public Use
  Company Number: US-BAYER-2013-103624

PATIENT
  Age: 32 Year
  Sex: Female
  Weight: 97.96 kg

DRUGS (5)
  1. MIRENA [Suspect]
     Indication: CONTRACEPTION
     Dosage: 20 MCG/24HR, CONT
     Route: 015
     Dates: start: 20081212, end: 20110420
  2. ZOLOFT [Concomitant]
     Indication: DEPRESSION
     Dosage: 50 MG, UNK
     Dates: start: 2004
  3. ALBUTEROL [Concomitant]
     Indication: SEASONAL ALLERGY
     Dosage: UNK
     Dates: start: 2005, end: 2012
  4. AZITHROMYCIN [Concomitant]
     Dosage: 250 MG, UNK
  5. DEPO-PROVERA [Concomitant]

REACTIONS (8)
  - Uterine perforation [None]
  - Device dislocation [None]
  - Device difficult to use [None]
  - Device use error [None]
  - Injury [None]
  - Pain [None]
  - Dyspareunia [None]
  - Emotional distress [None]
